FAERS Safety Report 25475284 (Version 3)
Quarter: 2025Q4

REPORT INFORMATION
  Report Type: Spontaneous
  Country: US (occurrence: None)
  Receive Date: 20250624
  Receipt Date: 20251029
  Transmission Date: 20260118
  Serious: Yes (Hospitalization, Other)
  Sender: UCB
  Company Number: US-UCBSA-2025037698

PATIENT
  Age: 34 Year
  Weight: 145.13 kg

DRUGS (1)
  1. BIMZELX [Suspect]
     Active Substance: BIMEKIZUMAB-BKZX
     Indication: Psoriasis
     Dosage: 320 MILLIGRAM, EV 4 WEEKS

REACTIONS (4)
  - Spinal fracture [Unknown]
  - Road traffic accident [Unknown]
  - Product dose omission issue [Unknown]
  - Product availability issue [Unknown]
